FAERS Safety Report 24525879 (Version 1)
Quarter: 2024Q4

REPORT INFORMATION
  Report Type: Spontaneous
  Country: RU (occurrence: RU)
  Receive Date: 20241020
  Receipt Date: 20241020
  Transmission Date: 20250115
  Serious: No
  Sender: ORGANON
  Company Number: RU-ORGANON-O2410RUS001158

PATIENT
  Sex: Male

DRUGS (1)
  1. NASONEX [Suspect]
     Active Substance: MOMETASONE FUROATE
     Indication: Ear pain
     Dosage: UNK, SPRAYED NASONEX INTO HIS EAR FOR 2 WEEKS
     Route: 050

REACTIONS (7)
  - Tinnitus [Unknown]
  - Ear discomfort [Unknown]
  - Therapeutic response unexpected [Unknown]
  - Product prescribing issue [Unknown]
  - Incorrect route of product administration [Unknown]
  - Drug ineffective for unapproved indication [Unknown]
  - Product use in unapproved indication [Unknown]
